FAERS Safety Report 23189237 (Version 1)
Quarter: 2023Q4

REPORT INFORMATION
  Report Type: Spontaneous
  Country: US (occurrence: US)
  Receive Date: 20231115
  Receipt Date: 20231115
  Transmission Date: 20240109
  Serious: No
  Sender: FDA-Public Use
  Company Number: US-drreddys-SPO/USA/23/0179959

PATIENT
  Age: 46 Year
  Sex: Female

DRUGS (1)
  1. ZENATANE [Suspect]
     Active Substance: ISOTRETINOIN
     Indication: Product used for unknown indication
     Dosage: RMA ISSUE DATE:18 MAY 2023 12:03:11 PM, 20 JUNE 2023 01:04:34 PM, 24 JULY 2023 04:16:18 PM, 24 AUGUS

REACTIONS (1)
  - Therapy cessation [Unknown]
